FAERS Safety Report 7937796-8 (Version None)
Quarter: 2011Q4

REPORT INFORMATION
  Report Type: 
  Country: None (occurrence: None)
  Receive Date: 20111123
  Receipt Date: 20111117
  Transmission Date: 20120403
  Serious: Yes (Hospitalization)
  Sender: FDA-Public Use
  Company Number: NZ-ABBOTT-11P-118-0874650-00

PATIENT
  Age: 39 Year
  Sex: Female

DRUGS (3)
  1. HUMIRA [Suspect]
     Indication: CROHN'S DISEASE
  2. UNKNOWN OPIOD [Suspect]
     Indication: PRODUCT USED FOR UNKNOWN INDICATION
  3. HUMIRA [Suspect]

REACTIONS (10)
  - ABDOMINAL PAIN [None]
  - SMALL INTESTINAL OBSTRUCTION [None]
  - REFUSAL OF TREATMENT BY PATIENT [None]
  - VOMITING [None]
  - PYREXIA [None]
  - WEIGHT DECREASED [None]
  - INTESTINAL MUCOSAL HYPERTROPHY [None]
  - INTESTINAL DILATATION [None]
  - RASH [None]
  - CONSTIPATION [None]
